FAERS Safety Report 9676186 (Version 1)
Quarter: 2013Q4

REPORT INFORMATION
  Report Type: Spontaneous
  Country: TW (occurrence: TW)
  Receive Date: 20131107
  Receipt Date: 20131107
  Transmission Date: 20140711
  Serious: Yes (Other)
  Sender: FDA-Public Use
  Company Number: ALCN2013TW005574

PATIENT
  Age: 13 Year
  Sex: Male

DRUGS (1)
  1. DEXAMETHASONE [Suspect]
     Indication: CONJUNCTIVITIS ALLERGIC
     Dosage: UNK
     Route: 047
     Dates: start: 200503

REACTIONS (5)
  - Ulcerative keratitis [Recovered/Resolved]
  - Corneal opacity [Unknown]
  - Visual acuity reduced [Recovering/Resolving]
  - Corneal deposits [Recovered/Resolved]
  - Drug ineffective [Unknown]
